FAERS Safety Report 13245186 (Version 2)
Quarter: 2017Q1

REPORT INFORMATION
  Report Type: Report from Study
  Country: PL (occurrence: PL)
  Receive Date: 20170216
  Receipt Date: 20170222
  Transmission Date: 20170428
  Serious: Yes (Death, Hospitalization)
  Sender: FDA-Public Use
  Company Number: PL-ROCHE-1892865

PATIENT
  Age: 75 Year
  Sex: Female

DRUGS (6)
  1. NEBIVOLOLUM [Concomitant]
     Indication: HYPERTENSION
     Route: 065
     Dates: start: 2011
  2. OBINUTUZUMAB [Suspect]
     Active Substance: OBINUTUZUMAB
     Indication: CHRONIC LYMPHOCYTIC LEUKAEMIA
     Route: 065
     Dates: start: 20161115
  3. HYDROCHLOROTHIAZIDE. [Concomitant]
     Active Substance: HYDROCHLOROTHIAZIDE
     Indication: HYPERTRIGLYCERIDAEMIA
     Route: 065
     Dates: start: 2011
  4. OBINUTUZUMAB [Suspect]
     Active Substance: OBINUTUZUMAB
     Dosage: ON 13/DEC/2016, AT 12:30 HE STARTED THERAPY OBINUTUZUMAB. ON THE SAME DAY, AT 15:30 THE OBINUTUZUMAB
     Route: 042
     Dates: start: 20161213, end: 20161213
  5. ACP-196 (BTK INHIBITOR) [Suspect]
     Active Substance: ACALABRUTINIB
     Indication: CHRONIC LYMPHOCYTIC LEUKAEMIA
     Dosage: 12:00, ON 10/FEB/2017, HE RECEIVED HIS LAST DOSE OF ACP-196 (BTK INHIBITOR).
     Route: 065
     Dates: start: 20161017
  6. LISIPROL [Concomitant]
     Active Substance: LISINOPRIL
     Indication: HYPERTENSION
     Route: 065
     Dates: start: 2011

REACTIONS (1)
  - Deep vein thrombosis [Fatal]

NARRATIVE: CASE EVENT DATE: 20170209
